FAERS Safety Report 15800319 (Version 2)
Quarter: 2019Q1

REPORT INFORMATION
  Report Type: Spontaneous
  Country: US (occurrence: US)
  Receive Date: 20190108
  Receipt Date: 20190205
  Transmission Date: 20190417
  Serious: Yes (Hospitalization, Other)
  Sender: FDA-Public Use
  Company Number: US-JAZZ-2019-US-000096

PATIENT
  Age: 32 Year
  Sex: Male

DRUGS (1)
  1. XYREM [Suspect]
     Active Substance: SODIUM OXYBATE
     Indication: PRODUCT USED FOR UNKNOWN INDICATION
     Route: 048

REACTIONS (12)
  - Agitation [Recovered/Resolved]
  - Coma [Unknown]
  - Retching [Not Recovered/Not Resolved]
  - Blood glucose increased [Recovering/Resolving]
  - Suicide attempt [Unknown]
  - Irritability [Recovered/Resolved]
  - Secretion discharge [Recovered/Resolved]
  - Intentional product misuse [Unknown]
  - Aspartate aminotransferase increased [Recovering/Resolving]
  - Heart rate increased [Unknown]
  - Alanine aminotransferase increased [Recovering/Resolving]
  - Overdose [Unknown]
